FAERS Safety Report 23321777 (Version 3)
Quarter: 2024Q1

REPORT INFORMATION
  Report Type: Report from Study
  Country: CA (occurrence: CA)
  Receive Date: 20231220
  Receipt Date: 20240328
  Transmission Date: 20240409
  Serious: Yes (Other)
  Sender: FDA-Public Use
  Company Number: CA-HLS-202302902

PATIENT
  Sex: Male

DRUGS (1)
  1. CLOZARIL [Suspect]
     Active Substance: CLOZAPINE
     Indication: Product used for unknown indication
     Route: 048
     Dates: start: 20210329

REACTIONS (5)
  - Drug level increased [Unknown]
  - Illness [Unknown]
  - Heart rate increased [Unknown]
  - Mania [Unknown]
  - Suicidal behaviour [Unknown]
